FAERS Safety Report 8445171 (Version 2)
Quarter: 2014Q1

REPORT INFORMATION
  Report Type: Spontaneous
  Country: FR (occurrence: FR)
  Receive Date: 20120307
  Receipt Date: 20140128
  Transmission Date: 20141002
  Serious: Yes (Other)
  Sender: FDA-Public Use
  Company Number: PHHY2012FR018290

PATIENT
  Age: 19 Year
  Sex: Male

DRUGS (2)
  1. TAMOXIFEN SANDOZ [Suspect]
     Route: 048
     Dates: start: 20111028, end: 20111028
  2. IBUPROFEN SANDOZ [Suspect]

REACTIONS (1)
  - Wrong drug administered [Unknown]
